FAERS Safety Report 5408709-8 (Version None)
Quarter: 2007Q3

REPORT INFORMATION
  Report Type: 
  Country: None (occurrence: None)
  Receive Date: 20070808
  Receipt Date: 20070803
  Transmission Date: 20080115
  Serious: Yes (Hospitalization)
  Sender: FDA-Public Use
  Company Number: A0668148A

PATIENT
  Age: 70 Year

DRUGS (13)
  1. ADVAIR DISKUS 100/50 [Suspect]
     Indication: CHRONIC OBSTRUCTIVE PULMONARY DISEASE
     Route: 055
     Dates: start: 20020101
  2. SPIRIVA [Concomitant]
  3. FLONASE [Concomitant]
  4. COMBIVENT [Concomitant]
  5. PREDNISONE TAB [Concomitant]
  6. ALBUTEROL [Concomitant]
  7. IRON [Concomitant]
  8. ZOCOR [Concomitant]
  9. WELLBUTRIN [Concomitant]
  10. DIGOXIN [Concomitant]
  11. FOLIC ACID [Concomitant]
  12. ACIPHEX [Concomitant]
  13. MUCINEX [Concomitant]

REACTIONS (1)
  - LUNG INFECTION [None]
